FAERS Safety Report 25401754 (Version 1)
Quarter: 2025Q2

REPORT INFORMATION
  Report Type: Spontaneous
  Country: US (occurrence: None)
  Receive Date: 20250605
  Receipt Date: 20250605
  Transmission Date: 20250717
  Serious: No
  Sender: FDA-CTU
  Company Number: None

PATIENT
  Age: 24 Year
  Sex: Female
  Weight: 96.75 kg

DRUGS (9)
  1. METRONIDAZOLE [Suspect]
     Active Substance: METRONIDAZOLE
     Indication: Pelvic inflammatory disease
     Dates: start: 20250522, end: 20250605
  2. DOXYCYCLINE [Suspect]
     Active Substance: DOXYCYCLINE
     Indication: Pelvic inflammatory disease
     Dates: start: 20250522, end: 20250605
  3. LAMOTRIGINE [Concomitant]
     Active Substance: LAMOTRIGINE
  4. BUSPIRONE [Concomitant]
     Active Substance: BUSPIRONE HYDROCHLORIDE
  5. PANTOPRAZOLE [Concomitant]
     Active Substance: PANTOPRAZOLE
  6. TROSPIUM [Concomitant]
     Active Substance: TROSPIUM
  7. HYDROXYZINE [Concomitant]
     Active Substance: HYDROXYZINE HYDROCHLORIDE
  8. AMPHETAMINE SULFATE\DEXTROAMPHETAMINE [Concomitant]
     Active Substance: AMPHETAMINE SULFATE\DEXTROAMPHETAMINE
  9. Cran XR [Concomitant]

REACTIONS (1)
  - Insomnia [None]

NARRATIVE: CASE EVENT DATE: 20250601
